FAERS Safety Report 19998134 (Version 3)
Quarter: 2022Q2

REPORT INFORMATION
  Report Type: Report from Study
  Country: US (occurrence: US)
  Receive Date: 20211026
  Receipt Date: 20220608
  Transmission Date: 20220721
  Serious: Yes (Other)
  Sender: FDA-Public Use
  Company Number: US-ALLERGAN-2134628US

PATIENT
  Sex: Female

DRUGS (1)
  1. BRIMONIDINE [Suspect]
     Active Substance: BRIMONIDINE TARTRATE
     Indication: Product used for unknown indication
     Dosage: 2 GTT, BID
     Route: 047

REACTIONS (4)
  - Blindness unilateral [Unknown]
  - Limb injury [Unknown]
  - Visual impairment [Unknown]
  - Therapy interrupted [Unknown]
